FAERS Safety Report 23815070 (Version 1)
Quarter: 2024Q2

REPORT INFORMATION
  Report Type: Spontaneous
  Country: US (occurrence: None)
  Receive Date: 20240502
  Receipt Date: 20240502
  Transmission Date: 20240716
  Serious: Yes (Other)
  Sender: FDA-Public Use
  Company Number: None

PATIENT
  Age: 69 Year
  Sex: Female
  Weight: 78.12 kg

DRUGS (14)
  1. LENALIDOMIDE [Suspect]
     Active Substance: LENALIDOMIDE
     Indication: Plasma cell myeloma
     Dosage: 1 TOT - TOTAL DAILY ORAL
     Route: 048
     Dates: start: 20210809
  2. Ativan 0.5 mg tablet [Concomitant]
  3. BACLOFEN [Concomitant]
     Active Substance: BACLOFEN
  4. calcium 1000mg [Concomitant]
  5. Decadron 4 mg tablet [Concomitant]
  6. desoximetasone 0.25 % topical cream [Concomitant]
  7. hydrocodone 10 mg-acetaminophen 325 mg table [Concomitant]
  8. Latisse 0.03 % eyelash drops [Concomitant]
  9. Maxzide-25mg 37.5 mg-25 mg tablet [Concomitant]
  10. METAXALONE 800 MG TAB [Concomitant]
  11. ondansetron HCl 4 mg tablet [Concomitant]
  12. tramadol 50 mg tablet [Concomitant]
  13. Vitamin B-12 1,000 mcg tablet [Concomitant]
  14. Vitamin D2 1,250 mcg (50,000 unit) capsule [Concomitant]

REACTIONS (1)
  - Neutrophil count decreased [None]

NARRATIVE: CASE EVENT DATE: 20240425
